FAERS Safety Report 9016825 (Version 1)
Quarter: 2013Q1

REPORT INFORMATION
  Report Type: Spontaneous
  Country: US (occurrence: US)
  Receive Date: 20130117
  Receipt Date: 20130117
  Transmission Date: 20140127
  Serious: Yes (Other)
  Sender: FDA-Public Use
  Company Number: US-ELI_LILLY_AND_COMPANY-US201301003595

PATIENT
  Sex: Female

DRUGS (2)
  1. CYMBALTA [Suspect]
     Indication: DEPRESSION
     Dosage: 60 MG, QD
     Dates: start: 2007
  2. LITHIUM [Concomitant]

REACTIONS (11)
  - Self-injurious ideation [Unknown]
  - Bipolar disorder [Unknown]
  - Mania [Unknown]
  - Borderline personality disorder [Unknown]
  - Fatigue [Unknown]
  - Drug dose omission [Unknown]
  - Drug withdrawal syndrome [Unknown]
  - Dizziness [Unknown]
  - Paraesthesia [Unknown]
  - Abnormal behaviour [Unknown]
  - Drug effect decreased [Not Recovered/Not Resolved]
